FAERS Safety Report 7919501-4 (Version None)
Quarter: 2011Q4

REPORT INFORMATION
  Report Type: 
  Country: None (occurrence: None)
  Receive Date: 20111117
  Receipt Date: 20111107
  Transmission Date: 20120403
  Serious: Yes (Hospitalization)
  Sender: FDA-Public Use
  Company Number: JP-AMGEN-JPNCT2010011960

PATIENT
  Age: 66 Year
  Sex: Male
  Weight: 70 kg

DRUGS (17)
  1. PANITUMUMAB [Suspect]
     Dosage: 6 MG/KG, Q2WK
     Route: 041
     Dates: start: 20101027, end: 20101027
  2. CORTICOSTEROIDS [Concomitant]
     Indication: PROPHYLAXIS
     Dosage: UNK
     Route: 065
  3. ANOPROLIN [Concomitant]
     Dosage: UNK
     Route: 048
  4. PANITUMUMAB [Suspect]
     Dosage: 6 MG/KG, Q2WK
     Route: 041
     Dates: start: 20101206
  5. LEVOLEUCOVORIN CALCIUM [Suspect]
     Indication: COLORECTAL CANCER
     Route: 041
     Dates: start: 20100930
  6. PRIMPERAN TAB [Concomitant]
     Dosage: UNK
     Route: 042
  7. DAIKENTYUTO [Concomitant]
     Dosage: UNK
     Route: 048
  8. PANITUMUMAB [Suspect]
     Indication: COLORECTAL CANCER
     Dosage: 6 MG/KG, Q2WK
     Route: 041
     Dates: start: 20100930, end: 20110930
  9. METHYCOBAL [Concomitant]
     Indication: NEUROPATHY PERIPHERAL
     Dosage: UNK
     Route: 048
  10. FLUOROURACIL [Suspect]
     Indication: COLORECTAL CANCER
     Dosage: 400 MG/M2, Q2WK
     Route: 040
     Dates: start: 20100930
  11. FLUOROURACIL [Suspect]
     Dosage: 2400 MG/M2, Q2WK
     Route: 041
     Dates: start: 20100930
  12. OXALIPLATIN [Suspect]
     Indication: COLORECTAL CANCER
     Dosage: 85 MG/M2, Q2WK
     Route: 041
     Dates: start: 20100930
  13. GRANISETRON [Concomitant]
     Dosage: UNK
     Route: 042
  14. LYRICA [Concomitant]
     Indication: NEUROPATHY PERIPHERAL
     Dosage: UNK
     Route: 048
  15. RABEPRAZOLE SODIUM [Concomitant]
     Dosage: UNK
     Route: 048
  16. DECADRON [Concomitant]
     Dosage: UNK
     Route: 042
  17. MAGMITT [Concomitant]
     Dosage: UNK
     Route: 048

REACTIONS (4)
  - HEPATIC ENCEPHALOPATHY [None]
  - DECREASED APPETITE [None]
  - MALAISE [None]
  - DERMATITIS ACNEIFORM [None]
